FAERS Safety Report 14111366 (Version 1)
Quarter: 2017Q4

REPORT INFORMATION
  Report Type: Spontaneous
  Country: US (occurrence: US)
  Receive Date: 20171020
  Receipt Date: 20171020
  Transmission Date: 20180321
  Serious: Yes (Hospitalization, Other)
  Sender: FDA-Public Use
  Company Number: US-PFIZER INC-2017450704

PATIENT
  Age: 70 Year
  Sex: Female
  Weight: 57.61 kg

DRUGS (8)
  1. DIGOXIN. [Concomitant]
     Active Substance: DIGOXIN
  2. FUROSEMIDE. [Concomitant]
     Active Substance: FUROSEMIDE
     Indication: CARDIAC DISORDER
     Dosage: 40 MG
  3. OMEPRAZOLE. [Concomitant]
     Active Substance: OMEPRAZOLE
     Indication: GASTRIC DISORDER
  4. CARVEDILOL. [Concomitant]
     Active Substance: CARVEDILOL
  5. LISINOPRIL. [Concomitant]
     Active Substance: LISINOPRIL
  6. ASPIRIN. [Concomitant]
     Active Substance: ASPIRIN
     Indication: CARDIAC DISORDER
     Dosage: 81 MG, UNK
  7. SIMVASTATIN. [Concomitant]
     Active Substance: SIMVASTATIN
  8. ROBITUSSIN COUGH AND CHEST CONGESTION DM MAX [Suspect]
     Active Substance: DEXTROMETHORPHAN HYDROBROMIDE\GUAIFENESIN
     Indication: COUGH
     Dosage: 20 ML,  ^EVERY 4 HOURS^ AS NEEDED

REACTIONS (4)
  - Cardiac failure congestive [Unknown]
  - Rales [Unknown]
  - Blood pressure abnormal [Unknown]
  - Pleural effusion [Unknown]
